FAERS Safety Report 22078447 (Version 2)
Quarter: 2023Q2

REPORT INFORMATION
  Report Type: Report from Study
  Country: US (occurrence: US)
  Receive Date: 20230309
  Receipt Date: 20230511
  Transmission Date: 20230721
  Serious: No
  Sender: FDA-Public Use
  Company Number: US-SA-SAC20230306001169

PATIENT
  Age: 54 Year
  Sex: Female
  Weight: 68.027 kg

DRUGS (2)
  1. DUPILUMAB [Suspect]
     Active Substance: DUPILUMAB
     Indication: Dermatitis atopic
     Dosage: 300 MG, QOW
     Route: 058
  2. DUPILUMAB [Suspect]
     Active Substance: DUPILUMAB
     Indication: Eosinophilia

REACTIONS (5)
  - Pruritus [Unknown]
  - Rash [Recovered/Resolved]
  - Product dose omission issue [Unknown]
  - Eye pruritus [Recovered/Resolved]
  - Product use in unapproved indication [Unknown]
